FAERS Safety Report 23699960 (Version 2)
Quarter: 2024Q2

REPORT INFORMATION
  Report Type: Report from Study
  Country: CA (occurrence: CA)
  Receive Date: 20240403
  Receipt Date: 20240619
  Transmission Date: 20240716
  Serious: Yes (Hospitalization, Other)
  Sender: FDA-Public Use
  Company Number: CA-JNJFOC-20230139603

PATIENT
  Age: 49 Year
  Sex: Male
  Weight: 120 kg

DRUGS (6)
  1. REMICADE [Suspect]
     Active Substance: INFLIXIMAB
     Indication: Crohn^s disease
     Route: 041
     Dates: start: 20090304
  2. REMICADE [Suspect]
     Active Substance: INFLIXIMAB
     Dosage: PATIENT RECEIVED DOSE ON 01-MAR-2023 AND ON 21-APR-2023?EXPIRY DATE: AUG-2025
     Route: 041
  3. REMICADE [Suspect]
     Active Substance: INFLIXIMAB
     Dosage: THERAPY START DATE 03-APR-2023
     Route: 041
     Dates: start: 20230623
  4. REMICADE [Suspect]
     Active Substance: INFLIXIMAB
     Dosage: STRENGTH REPORTED AS:120 MG
     Route: 041
  5. REMICADE [Suspect]
     Active Substance: INFLIXIMAB
     Route: 041
  6. REMICADE [Suspect]
     Active Substance: INFLIXIMAB
     Route: 041

REACTIONS (10)
  - Pharyngitis streptococcal [Recovered/Resolved]
  - Eye swelling [Unknown]
  - Eye disorder [Recovered/Resolved]
  - Flushing [Unknown]
  - Squamous cell carcinoma [Not Recovered/Not Resolved]
  - Mass [Not Recovered/Not Resolved]
  - Blood calcium increased [Unknown]
  - Drug level increased [Unknown]
  - Rash erythematous [Unknown]
  - Off label use [Unknown]

NARRATIVE: CASE EVENT DATE: 20090304
